FAERS Safety Report 14473072 (Version 1)
Quarter: 2018Q1

REPORT INFORMATION
  Report Type: Report from Study
  Country: TR (occurrence: TR)
  Receive Date: 20180201
  Receipt Date: 20180201
  Transmission Date: 20180509
  Serious: Yes (Life-Threatening, Hospitalization, Other)
  Sender: FDA-Public Use
  Company Number: TR-ACCORD-063057

PATIENT
  Age: 4 Year
  Sex: Male

DRUGS (1)
  1. TACROLIMUS. [Suspect]
     Active Substance: TACROLIMUS
     Indication: IMMUNOSUPPRESSANT DRUG THERAPY

REACTIONS (3)
  - Cerebral palsy [Unknown]
  - Haemorrhage intracranial [Unknown]
  - Posterior reversible encephalopathy syndrome [Recovered/Resolved]
